FAERS Safety Report 5275463-2 (Version None)
Quarter: 2007Q1

REPORT INFORMATION
  Report Type: 
  Country: None (occurrence: None)
  Receive Date: 20070322
  Receipt Date: 20070322
  Transmission Date: 20070707
  Serious: No
  Sender: FDA-Public Use
  Company Number: None

PATIENT
  Age: 58 Year
  Sex: Female

DRUGS (11)
  1. TRILEPTAL [Suspect]
     Indication: BIPOLAR DISORDER
     Dosage: 750 MG BID
     Dates: start: 20050101
  2. SEROQUEL [Concomitant]
  3. ZYPREXA [Concomitant]
  4. NITROSTAT [Concomitant]
  5. COGENTIN [Concomitant]
  6. ZYRTEC [Concomitant]
  7. ULTRAM [Concomitant]
  8. ATIVAN [Concomitant]
  9. VIT D [Concomitant]
  10. FIBER [Concomitant]
  11. IRON [Concomitant]

REACTIONS (2)
  - CONDITION AGGRAVATED [None]
  - ELASTOSIS PERFORANS [None]
